FAERS Safety Report 8882094 (Version 2)
Quarter: 2014Q2

REPORT INFORMATION
  Report Type: Spontaneous
  Country: US (occurrence: US)
  Receive Date: 20121105
  Receipt Date: 20140401
  Transmission Date: 20141212
  Serious: Yes (Other)
  Sender: FDA-Public Use
  Company Number: US-BAYER-2012-114264

PATIENT
  Age: 19 Year
  Sex: Female

DRUGS (11)
  1. YAZ [Suspect]
     Dosage: UNK
     Dates: start: 200807
  2. OCELLA [Suspect]
     Dosage: UNK
     Dates: start: 200807
  3. BENTYL [Concomitant]
     Indication: ABDOMINAL PAIN
  4. PREVACID [Concomitant]
     Indication: ABDOMINAL PAIN
  5. STRATTERA [Concomitant]
     Dosage: 60 MG DAILY
  6. DESOGEN [DESOGESTREL,ETHINYLESTRADIOL] [Concomitant]
     Dosage: UNK
     Dates: start: 20091002
  7. PRILOSEC [Concomitant]
  8. IBUPROFEN [Concomitant]
  9. DARVOCET-N [Concomitant]
  10. LEXAPRO [Concomitant]
  11. ADIPEX [Concomitant]

REACTIONS (5)
  - Biliary dyskinesia [None]
  - Cholecystitis chronic [None]
  - Injury [None]
  - Pain [None]
  - Pain [None]
